FAERS Safety Report 4609772-4 (Version None)
Quarter: 2005Q1

REPORT INFORMATION
  Report Type: 
  Country: None (occurrence: None)
  Receive Date: 20050314
  Receipt Date: 20050304
  Transmission Date: 20050727
  Serious: Yes (Life-Threatening, Hospitalization, Other)
  Sender: FDA-Public Use
  Company Number: DEWYE477904MAR05

PATIENT
  Age: 27 Year
  Sex: Female

DRUGS (7)
  1. TREVILOR (VENLAFAXINE HYDROCHLORIDE, TABLET, 0) [Suspect]
     Dosage: SEE IMAGE
     Route: 048
     Dates: start: 20041029, end: 20041102
  2. TREVILOR (VENLAFAXINE HYDROCHLORIDE, TABLET, 0) [Suspect]
     Dosage: SEE IMAGE
     Route: 048
     Dates: start: 20041103, end: 20041105
  3. TREVILOR (VENLAFAXINE HYDROCHLORIDE, TABLET, 0) [Suspect]
     Dosage: SEE IMAGE
     Route: 048
     Dates: start: 20041106, end: 20041111
  4. TREVILOR (VENLAFAXINE HYDROCHLORIDE, TABLET, 0) [Suspect]
     Dosage: SEE IMAGE
     Route: 048
     Dates: start: 20041112, end: 20041118
  5. TREVILOR (VENLAFAXINE HYDROCHLORIDE, TABLET, 0) [Suspect]
     Dosage: SEE IMAGE
     Route: 048
     Dates: start: 20041128, end: 20041128
  6. TREVILOR (VENLAFAXINE HYDROCHLORIDE, TABLET, 0) [Suspect]
     Dosage: SEE IMAGE
     Route: 048
     Dates: start: 20041119, end: 20041129
  7. STANGYL (TRIMIPRAMINE MALEATE) [Suspect]
     Dosage: 100 MG 1X PER 1 DAY
     Route: 048
     Dates: start: 20041128, end: 20041128

REACTIONS (5)
  - EXTRADURAL HAEMATOMA [None]
  - GRAND MAL CONVULSION [None]
  - HEAD INJURY [None]
  - SKULL FRACTURE [None]
  - SUBARACHNOID HAEMORRHAGE [None]
